FAERS Safety Report 20216387 (Version 1)
Quarter: 2021Q4

REPORT INFORMATION
  Report Type: Spontaneous
  Country: US (occurrence: None)
  Receive Date: 20211221
  Receipt Date: 20211221
  Transmission Date: 20220303
  Serious: No
  Sender: FDA-Public Use
  Company Number: None

PATIENT
  Sex: Female

DRUGS (1)
  1. DALFAMPRIDINE [Suspect]
     Active Substance: DALFAMPRIDINE
     Indication: Multiple sclerosis
     Dosage: FREQUENCY : EVERY 12 HOURS;?
     Route: 048
     Dates: start: 20190904

REACTIONS (8)
  - Fall [None]
  - Muscular weakness [None]
  - Gait disturbance [None]
  - Dysstasia [None]
  - Arthralgia [None]
  - Gait disturbance [None]
  - Insomnia [None]
  - Drug ineffective [None]
